FAERS Safety Report 18643642 (Version 4)
Quarter: 2021Q2

REPORT INFORMATION
  Report Type: Spontaneous
  Country: PL (occurrence: PL)
  Receive Date: 20201221
  Receipt Date: 20210609
  Transmission Date: 20210717
  Serious: Yes (Other)
  Sender: FDA-Public Use
  Company Number: PL-PFIZER INC-2020499386

PATIENT
  Age: 57 Year
  Sex: Female

DRUGS (7)
  1. TRASTUZUMAB. [Suspect]
     Active Substance: TRASTUZUMAB
     Indication: HER2 POSITIVE BREAST CANCER
     Dosage: UNK
     Route: 065
     Dates: start: 201903, end: 201907
  2. KADCYLA [Suspect]
     Active Substance: ADO-TRASTUZUMAB EMTANSINE
     Indication: HER2 POSITIVE BREAST CANCER
     Dosage: 3.6 MG/KG, EVERY 3 WEEKS (RECEIVED SO FAR 9 COURSES)
     Route: 042
     Dates: start: 202006, end: 202011
  3. TRASTUZUMAB. [Suspect]
     Active Substance: TRASTUZUMAB
     Dosage: UNK
     Route: 065
     Dates: start: 201907, end: 202005
  4. DOCETAXEL. [Suspect]
     Active Substance: DOCETAXEL
     Indication: HER2 POSITIVE BREAST CANCER
     Dosage: UNK
     Route: 065
     Dates: start: 201903, end: 201907
  5. TRASTUZUMAB. [Suspect]
     Active Substance: TRASTUZUMAB
     Dosage: UNK
     Route: 058
     Dates: start: 201609, end: 201708
  6. PERTUZUMAB. [Suspect]
     Active Substance: PERTUZUMAB
     Dosage: STANDARD
     Route: 065
     Dates: start: 201907, end: 202005
  7. PERTUZUMAB. [Suspect]
     Active Substance: PERTUZUMAB
     Indication: HER2 POSITIVE BREAST CANCER
     Dosage: STANDARD
     Route: 065
     Dates: start: 201903, end: 201907

REACTIONS (8)
  - Ventricular hypokinesia [Recovered/Resolved]
  - Diarrhoea [Not Recovered/Not Resolved]
  - Off label use [Unknown]
  - Ejection fraction decreased [Recovered/Resolved]
  - Therapy partial responder [Unknown]
  - Neoplasm recurrence [Unknown]
  - Metastases to central nervous system [Unknown]
  - Product use issue [Unknown]

NARRATIVE: CASE EVENT DATE: 201609
